FAERS Safety Report 7842236-3 (Version None)
Quarter: 2011Q4

REPORT INFORMATION
  Report Type: 
  Country: None (occurrence: None)
  Receive Date: 20111025
  Receipt Date: 20100112
  Transmission Date: 20120403
  Serious: Yes (Death, Hospitalization)
  Sender: FDA-Public Use
  Company Number: GB-JNJFOC-20100701232

PATIENT
  Age: 62 Year
  Sex: Female

DRUGS (7)
  1. CHLORAL HYDRATE [Suspect]
     Indication: ILL-DEFINED DISORDER
     Route: 065
  2. DIAZEPAM [Suspect]
     Indication: ILL-DEFINED DISORDER
     Route: 065
  3. METHOTREXATE [Concomitant]
     Indication: RHEUMATOID ARTHRITIS
     Route: 065
  4. ALCOHOL [Suspect]
     Indication: ILL-DEFINED DISORDER
     Route: 065
  5. CODEINE PHOSPHATE [Suspect]
     Indication: PRODUCT USED FOR UNKNOWN INDICATION
     Route: 065
  6. FLUOXETINE [Concomitant]
     Indication: DEPRESSION
     Route: 065
  7. ACETAMINOPHEN AND CODEINE PHOSPHATE [Suspect]
     Indication: ILL-DEFINED DISORDER
     Route: 065

REACTIONS (5)
  - OVERDOSE [None]
  - DEPRESSION [None]
  - CEREBROVASCULAR ACCIDENT [None]
  - SUICIDE ATTEMPT [None]
  - HEMIPARESIS [None]
